FAERS Safety Report 13760902 (Version 2)
Quarter: 2017Q3

REPORT INFORMATION
  Report Type: Report from Study
  Country: US (occurrence: US)
  Receive Date: 20170717
  Receipt Date: 20170810
  Transmission Date: 20171127
  Serious: No
  Sender: FDA-Public Use
  Company Number: PHEH2017US021531

PATIENT
  Sex: Female

DRUGS (2)
  1. TAFINLAR [Suspect]
     Active Substance: DABRAFENIB MESYLATE
     Indication: LUNG ADENOCARCINOMA
     Dosage: 100 MG, QD
     Route: 048
     Dates: start: 20150810
  2. MEKINIST [Suspect]
     Active Substance: TRAMETINIB DIMETHYL SULFOXIDE
     Indication: LUNG ADENOCARCINOMA
     Dosage: 2 MG, QD
     Route: 048
     Dates: start: 20150810

REACTIONS (1)
  - No adverse event [Unknown]
